FAERS Safety Report 21710568 (Version 1)
Quarter: 2022Q4

REPORT INFORMATION
  Report Type: Report from Study
  Country: US (occurrence: US)
  Receive Date: 20221212
  Receipt Date: 20221212
  Transmission Date: 20230112
  Serious: Yes (Other)
  Sender: FDA-Public Use
  Company Number: US-ABBVIE-22K-163-4475737-00

PATIENT
  Sex: Female

DRUGS (1)
  1. RINVOQ [Suspect]
     Active Substance: UPADACITINIB
     Indication: Rheumatoid arthritis
     Route: 048

REACTIONS (5)
  - Femur fracture [Unknown]
  - Osteoporosis [Unknown]
  - Joint range of motion decreased [Unknown]
  - Grip strength decreased [Unknown]
  - Rheumatoid arthritis [Unknown]
